FAERS Safety Report 5397749-3 (Version None)
Quarter: 2007Q3

REPORT INFORMATION
  Report Type: 
  Country: None (occurrence: None)
  Receive Date: 20070726
  Receipt Date: 20070719
  Transmission Date: 20080115
  Serious: Yes (Other)
  Sender: FDA-Public Use
  Company Number: A0665285A

PATIENT
  Age: 44 Year
  Sex: Female

DRUGS (13)
  1. IMITREX [Suspect]
     Indication: MIGRAINE
     Dosage: 6MG AS REQUIRED
     Route: 058
  2. CELEXA [Concomitant]
  3. LYRICA [Concomitant]
  4. CELEBREX [Concomitant]
  5. ZANAFLEX [Concomitant]
  6. NORTRIPTYLINE HCL [Concomitant]
  7. ADVIL LIQUI-GELS [Concomitant]
  8. VICODIN [Concomitant]
  9. XANAX [Concomitant]
  10. PREDNISONE [Concomitant]
  11. CALCIUM SALT + VITAMIN B [Concomitant]
  12. MULTI-VITAMIN [Concomitant]
  13. CRYSTALLINE VIT B12 INJ [Concomitant]

REACTIONS (4)
  - DEVICE MALFUNCTION [None]
  - EXPIRED DRUG ADMINISTERED [None]
  - MIGRAINE [None]
  - PHARMACEUTICAL PRODUCT COMPLAINT [None]
